FAERS Safety Report 19532719 (Version 1)
Quarter: 2021Q3

REPORT INFORMATION
  Report Type: Spontaneous
  Country: CA (occurrence: CA)
  Receive Date: 20210713
  Receipt Date: 20210713
  Transmission Date: 20211014
  Serious: Yes (Life-Threatening)
  Sender: FDA-Public Use
  Company Number: CA-AMERICAN REGENT INC-2021001753

PATIENT
  Age: 91 Year
  Sex: Male

DRUGS (1)
  1. VENOFER [Suspect]
     Active Substance: IRON SUCROSE
     Indication: ANAEMIA
     Dosage: 300 MILLIGRAM, QD
     Route: 042

REACTIONS (8)
  - Blood pressure fluctuation [Unknown]
  - Dyspnoea [Unknown]
  - Heart rate increased [Unknown]
  - Pyrexia [Unknown]
  - Chills [Recovered/Resolved]
  - Joint swelling [Unknown]
  - Oxygen consumption increased [Unknown]
  - Vomiting [Unknown]
